FAERS Safety Report 9406524 (Version 1)
Quarter: 2013Q3

REPORT INFORMATION
  Report Type: Spontaneous
  Country: SE (occurrence: SE)
  Receive Date: 20130718
  Receipt Date: 20130718
  Transmission Date: 20140515
  Serious: Yes (Other)
  Sender: FDA-Public Use
  Company Number: SE-RANBAXY-2013RR-71307

PATIENT
  Age: 64 Year
  Sex: Male

DRUGS (1)
  1. ENALAPRIL [Suspect]
     Indication: PRODUCT USED FOR UNKNOWN INDICATION
     Dosage: UNK
     Route: 065

REACTIONS (4)
  - Tachycardia [Unknown]
  - Angioedema [Unknown]
  - Pneumonia [Unknown]
  - Polyuria [Unknown]
